FAERS Safety Report 7463731-5 (Version None)
Quarter: 2011Q2

REPORT INFORMATION
  Report Type: 
  Country: None (occurrence: None)
  Receive Date: 20110506
  Receipt Date: 20101230
  Transmission Date: 20111010
  Serious: Yes (Hospitalization, Other)
  Sender: FDA-Public Use
  Company Number: US-BAYER-201035817NA

PATIENT
  Age: 28 Year
  Sex: Female
  Weight: 50 kg

DRUGS (4)
  1. YASMIN [Suspect]
     Indication: PREMENSTRUAL SYNDROME
  2. YASMIN [Suspect]
     Indication: ACNE
     Dosage: UNK
     Route: 048
     Dates: start: 20040101, end: 20040414
  3. PAROXETINE HYDROCHLORIDE [Concomitant]
     Dosage: 10 MG, UNK
  4. LORAZEPAM [Concomitant]
     Dosage: 0.5 MG, UNK

REACTIONS (8)
  - PULMONARY EMBOLISM [None]
  - BRONCHITIS [None]
  - STRESS [None]
  - LUNG DISORDER [None]
  - DEEP VEIN THROMBOSIS [None]
  - JOINT SWELLING [None]
  - PAIN [None]
  - ANXIETY [None]
